FAERS Safety Report 13121366 (Version 13)
Quarter: 2018Q1

REPORT INFORMATION
  Report Type: Report from Study
  Country: US (occurrence: US)
  Receive Date: 20170117
  Receipt Date: 20180309
  Transmission Date: 20180508
  Serious: Yes (Hospitalization)
  Sender: FDA-Public Use
  Company Number: US-ACTELION-A-NJ2017-148210

PATIENT
  Age: 57 Year
  Sex: Female
  Weight: 46.71 kg

DRUGS (8)
  1. VELETRI [Suspect]
     Active Substance: EPOPROSTENOL
     Dosage: 24 NG/KG, PER MIN
     Route: 042
  2. BUSPAR [Suspect]
     Active Substance: BUSPIRONE HYDROCHLORIDE
     Indication: PRODUCT USED FOR UNKNOWN INDICATION
     Route: 065
  3. OPSUMIT [Suspect]
     Active Substance: MACITENTAN
     Indication: PULMONARY HYPERTENSION
     Dosage: 10 MG, QD
     Route: 048
     Dates: start: 20150123
  4. VELETRI [Suspect]
     Active Substance: EPOPROSTENOL
     Dosage: 30 NG/KG, PER MIN
     Route: 042
     Dates: start: 20150914
  5. OPSUMIT [Suspect]
     Active Substance: MACITENTAN
     Dosage: 10 MG, QD
     Route: 048
  6. REVATIO [Concomitant]
     Active Substance: SILDENAFIL CITRATE
  7. NEURONTIN [Concomitant]
     Active Substance: GABAPENTIN
  8. VELETRI [Suspect]
     Active Substance: EPOPROSTENOL
     Indication: PULMONARY HYPERTENSION
     Dosage: 26 NG/KG, PER MIN
     Route: 042

REACTIONS (19)
  - Dizziness [Unknown]
  - Fall [Unknown]
  - Pneumonia bacterial [Unknown]
  - Rheumatoid arthritis [Unknown]
  - Nasopharyngitis [Unknown]
  - Pain in jaw [Unknown]
  - Osteoporosis [Unknown]
  - Contusion [Unknown]
  - Diarrhoea [Unknown]
  - Lung disorder [Unknown]
  - Vision blurred [Unknown]
  - Wound [Unknown]
  - Flushing [Unknown]
  - Influenza [Unknown]
  - Clostridium difficile infection [Unknown]
  - Cough [Unknown]
  - Dry eye [Unknown]
  - Haematoma [Unknown]
  - Dyspnoea exertional [Not Recovered/Not Resolved]

NARRATIVE: CASE EVENT DATE: 201707
